FAERS Safety Report 16941719 (Version 3)
Quarter: 2019Q4

REPORT INFORMATION
  Report Type: Spontaneous
  Country: US (occurrence: US)
  Receive Date: 20191021
  Receipt Date: 20191205
  Transmission Date: 20200122
  Serious: No
  Sender: FDA-Public Use
  Company Number: US-LEXICON PHARMACEUTICALS, INC-19-1606-00940

PATIENT
  Sex: Female

DRUGS (3)
  1. SANDOSTATIN [Concomitant]
     Active Substance: OCTREOTIDE ACETATE
  2. HYDRALAZINE [Concomitant]
     Active Substance: HYDRALAZINE HYDROCHLORIDE
  3. XERMELO [Suspect]
     Active Substance: TELOTRISTAT ETHYL
     Indication: CARCINOID SYNDROME
     Dates: start: 20190703

REACTIONS (7)
  - Product dose omission [Unknown]
  - Abdominal pain lower [Unknown]
  - Blood pressure increased [Unknown]
  - Serum serotonin increased [Unknown]
  - Infusion [Unknown]
  - Blood phosphorus decreased [Unknown]
  - Intra-abdominal fluid collection [Unknown]

NARRATIVE: CASE EVENT DATE: 2019
